FAERS Safety Report 6883812-4 (Version None)
Quarter: 2010Q3

REPORT INFORMATION
  Report Type: 
  Country: None (occurrence: None)
  Receive Date: 20100727
  Receipt Date: 20100713
  Transmission Date: 20110219
  Serious: Yes (Disabling)
  Sender: FDA-Public Use
  Company Number: 2010SP001786

PATIENT
  Age: 50 Year
  Sex: Female

DRUGS (3)
  1. OMNARIS [Suspect]
     Indication: RHINITIS ALLERGIC
     Dosage: NASAL
     Route: 045
     Dates: start: 20090101, end: 20090101
  2. BETAMETHASONE [Concomitant]
  3. PREDNISOLONE [Concomitant]

REACTIONS (3)
  - BLINDNESS [None]
  - CATARACT [None]
  - CONDITION AGGRAVATED [None]
